FAERS Safety Report 6900895-3 (Version None)
Quarter: 2010Q3

REPORT INFORMATION
  Report Type: 
  Country: None (occurrence: None)
  Receive Date: 20100803
  Receipt Date: 20100727
  Transmission Date: 20110219
  Serious: Yes (Death, Hospitalization)
  Sender: FDA-Public Use
  Company Number: A0867756A

PATIENT
  Age: 89 Year
  Sex: Female

DRUGS (1)
  1. AVANDIA [Suspect]
     Dates: start: 20090202, end: 20090316

REACTIONS (6)
  - ABDOMINAL HERNIA [None]
  - BLOOD GLUCOSE INCREASED [None]
  - BRADYARRHYTHMIA [None]
  - GANGRENE [None]
  - HYPERTENSION [None]
  - RENAL FAILURE CHRONIC [None]
